FAERS Safety Report 21021099 (Version 1)
Quarter: 2022Q2

REPORT INFORMATION
  Report Type: Report from Study
  Country: KR (occurrence: None)
  Receive Date: 20220629
  Receipt Date: 20220629
  Transmission Date: 20220721
  Serious: Yes (Hospitalization)
  Sender: FDA-Public Use
  Company Number: KR-Merck Healthcare KGaA-9332491

PATIENT
  Age: 9 Year
  Sex: Female

DRUGS (1)
  1. SAIZEN [Suspect]
     Active Substance: SOMATROPIN
     Indication: Product used for unknown indication
     Dates: start: 20220503

REACTIONS (2)
  - Liver function test abnormal [Unknown]
  - Nausea [Unknown]

NARRATIVE: CASE EVENT DATE: 20220503
